FAERS Safety Report 8997481 (Version 1)
Quarter: 2013Q1

REPORT INFORMATION
  Report Type: Report from Study
  Country: JP (occurrence: JP)
  Receive Date: 20130104
  Receipt Date: 20130104
  Transmission Date: 20140127
  Serious: Yes (Life-Threatening, Other)
  Sender: FDA-Public Use
  Company Number: JP-AMGEN-JPNCT2012084378

PATIENT
  Age: 74 Year
  Sex: Male

DRUGS (19)
  1. DARBEPOETIN ALFA [Suspect]
     Indication: NEPHROGENIC ANAEMIA
     Dosage: 60 MUG, Q4WK
     Route: 058
     Dates: start: 20110719, end: 20111011
  2. DARBEPOETIN ALFA [Suspect]
     Dosage: 30 MUG, QD
     Route: 058
     Dates: start: 20111220, end: 20111220
  3. DARBEPOETIN ALFA [Suspect]
     Dosage: 60 MUG, QD
     Route: 058
     Dates: start: 20120117, end: 20120117
  4. DARBEPOETIN ALFA [Suspect]
     Dosage: 60 MUG, Q4WK
     Route: 058
     Dates: start: 20120228, end: 20120522
  5. ACECOL [Concomitant]
     Dosage: UNK
     Route: 048
  6. PREDNISOLONE [Concomitant]
     Dosage: UNK
     Route: 048
  7. ZYLORIC [Concomitant]
     Dosage: UNK
     Route: 048
  8. MEVALOTIN [Concomitant]
     Dosage: UNK
     Route: 048
  9. SOLON [Concomitant]
     Dosage: UNK
     Route: 048
  10. COMELIAN [Concomitant]
     Indication: GLOMERULONEPHRITIS CHRONIC
     Dosage: UNK
     Route: 048
  11. AMLODIN [Concomitant]
     Route: 048
  12. BAYASPIRIN [Concomitant]
     Dosage: UNK
     Route: 048
  13. ANPLAG [Concomitant]
     Dosage: UNK
     Route: 048
  14. OMEPRAL [Concomitant]
     Dosage: UNK
     Route: 048
  15. JUSO [Concomitant]
     Dosage: UNK
     Route: 048
  16. KAYEXALATE [Concomitant]
     Dosage: UNK
     Route: 048
  17. AZULFIDINE EN [Concomitant]
     Dosage: UNK
     Route: 048
  18. PURSENNID [Concomitant]
     Dosage: UNK
     Route: 048
  19. ALOSENN [Concomitant]
     Route: 048

REACTIONS (2)
  - Urinary tract neoplasm [Unknown]
  - Muscle abscess [Unknown]
